FAERS Safety Report 6413972-0 (Version None)
Quarter: 2009Q4

REPORT INFORMATION
  Report Type: 
  Country: None (occurrence: None)
  Receive Date: 20091026
  Receipt Date: 20091014
  Transmission Date: 20100525
  Serious: Yes (Hospitalization)
  Sender: FDA-Public Use
  Company Number: FR-JNJFOC-20090906424

PATIENT
  Sex: Female

DRUGS (13)
  1. IXPRIM [Suspect]
     Dosage: 37.5/325MG
     Route: 048
  2. IXPRIM [Suspect]
     Dosage: 37.5/325MG
     Route: 048
  3. IXPRIM [Suspect]
     Dosage: 37.5/325MG
     Route: 048
  4. IXPRIM [Suspect]
     Indication: BACK PAIN
     Route: 048
  5. ATHYMIL [Concomitant]
  6. CORGARD [Concomitant]
  7. ENALAPRIL MALEATE [Concomitant]
  8. NEXIUM [Concomitant]
  9. NEXIUM [Concomitant]
  10. XANAX [Concomitant]
  11. TRIATEC [Concomitant]
     Dosage: 1.25MG
     Route: 065
  12. CARDENSIEL [Concomitant]
     Dosage: 0.5 MG
     Route: 065
  13. SODIUM ALGINATE W/SODIUM BICARBONATE [Concomitant]
     Route: 065

REACTIONS (4)
  - ANXIETY [None]
  - HYPERTENSION [None]
  - HYPONATRAEMIA [None]
  - SENSE OF OPPRESSION [None]
